FAERS Safety Report 10389862 (Version 1)
Quarter: 2014Q3

REPORT INFORMATION
  Report Type: Spontaneous
  Country: PL (occurrence: None)
  Receive Date: 20140813
  Receipt Date: 20140813
  Transmission Date: 20150326
  Serious: Yes (Hospitalization)
  Sender: FDA-Public Use
  Company Number: IMP_07781_2014

PATIENT
  Age: 85 Year
  Sex: Female

DRUGS (2)
  1. SOTALOL (SOTALOL) [Suspect]
     Active Substance: SOTALOL
     Indication: PRODUCT USED FOR UNKNOWN INDICATION
  2. CARVEDILOL (CARVEDILOL) [Suspect]
     Active Substance: CARVEDILOL
     Indication: PRODUCT USED FOR UNKNOWN INDICATION
     Route: 048

REACTIONS (7)
  - Supraventricular extrasystoles [None]
  - Electrocardiogram QT prolonged [None]
  - Palpitations [None]
  - Torsade de pointes [None]
  - Electrocardiogram T wave inversion [None]
  - Syncope [None]
  - Sinus bradycardia [None]
